FAERS Safety Report 12818314 (Version 11)
Quarter: 2017Q2

REPORT INFORMATION
  Report Type: Report from Study
  Country: US (occurrence: US)
  Receive Date: 20161005
  Receipt Date: 20170404
  Transmission Date: 20170830
  Serious: Yes (Other)
  Sender: FDA-Public Use
  Company Number: PHEH2016US025243

PATIENT
  Sex: Female

DRUGS (2)
  1. GILENYA [Suspect]
     Active Substance: FINGOLIMOD HYDROCHLORIDE
     Indication: SECONDARY PROGRESSIVE MULTIPLE SCLEROSIS
     Dosage: 0.5 MG, QD
     Route: 048
  2. GILENYA [Suspect]
     Active Substance: FINGOLIMOD HYDROCHLORIDE
     Indication: MULTIPLE SCLEROSIS

REACTIONS (25)
  - Fall [Unknown]
  - Arthralgia [Unknown]
  - Back pain [Unknown]
  - Dementia [Unknown]
  - Confusional state [Unknown]
  - Nervousness [Unknown]
  - Dizziness [Unknown]
  - Expired product administered [Unknown]
  - Drug ineffective [Unknown]
  - Blindness [Unknown]
  - Aphasia [Unknown]
  - Central nervous system lesion [Unknown]
  - Amnesia [Unknown]
  - Memory impairment [Unknown]
  - Dysphemia [Unknown]
  - Hip fracture [Unknown]
  - Weight decreased [Unknown]
  - Product use in unapproved indication [Unknown]
  - Haemorrhage [Unknown]
  - Balance disorder [Unknown]
  - Malaise [Unknown]
  - Abasia [Unknown]
  - Rib fracture [Unknown]
  - Head injury [Unknown]
  - Dysarthria [Unknown]
